FAERS Safety Report 5534187-4 (Version None)
Quarter: 2007Q4

REPORT INFORMATION
  Report Type: 
  Country: None (occurrence: None)
  Receive Date: 20071205
  Receipt Date: 20071126
  Transmission Date: 20080405
  Serious: Yes (Hospitalization)
  Sender: FDA-Public Use
  Company Number: FR-AVENTIS-200715629EU

PATIENT
  Age: 72 Year
  Sex: Female

DRUGS (7)
  1. FLUDEX                             /00340101/ [Suspect]
     Dosage: DOSE: 1 DF
     Route: 048
     Dates: start: 20070628, end: 20070701
  2. PROTELOS [Suspect]
     Route: 048
     Dates: start: 20060701, end: 20070705
  3. COVERSYL                           /00790701/ [Concomitant]
  4. LERCAN [Concomitant]
  5. VASTAREL [Concomitant]
  6. KARDEGIC                           /00002703/ [Concomitant]
  7. CALCIUM [Concomitant]

REACTIONS (1)
  - DRUG RASH WITH EOSINOPHILIA AND SYSTEMIC SYMPTOMS [None]
